FAERS Safety Report 8150456-6 (Version None)
Quarter: 2012Q1

REPORT INFORMATION
  Report Type: 
  Country: None (occurrence: None)
  Receive Date: 20120220
  Receipt Date: 20120212
  Transmission Date: 20120608
  Serious: Yes (Hospitalization, Other)
  Sender: FDA-Public Use
  Company Number: US-BAYER-2012-014210

PATIENT
  Age: 44 Year
  Sex: Female

DRUGS (2)
  1. MIRENA [Suspect]
     Indication: MENORRHAGIA
     Dosage: 20 MCG/24HR, CONT
     Route: 015
  2. MIRENA [Suspect]
     Indication: CONTRACEPTION

REACTIONS (5)
  - PELVIC INFLAMMATORY DISEASE [None]
  - NO ADVERSE EVENT [None]
  - MEDICAL DEVICE COMPLICATION [None]
  - AMENORRHOEA [None]
  - DEVICE DISLOCATION [None]
